APPROVED DRUG PRODUCT: EMBELINE
Active Ingredient: CLOBETASOL PROPIONATE
Strength: 0.05%
Dosage Form/Route: SOLUTION;TOPICAL
Application: A074222 | Product #001
Applicant: HIKMA PHARMACEUTICALS USA INC
Approved: Dec 6, 1995 | RLD: No | RS: No | Type: DISCN